FAERS Safety Report 23928869 (Version 1)
Quarter: 2024Q2

REPORT INFORMATION
  Report Type: Spontaneous
  Country: US (occurrence: US)
  Receive Date: 20240531
  Receipt Date: 20240531
  Transmission Date: 20240716
  Serious: Yes (Death, Life-Threatening, Other)
  Sender: FDA-Public Use
  Company Number: US-MALLINCKRODT-MNK202403311

PATIENT
  Age: 37 Year
  Sex: Female

DRUGS (1)
  1. TERLIPRESSIN [Suspect]
     Active Substance: TERLIPRESSIN
     Indication: Hepatorenal syndrome
     Dosage: UNKNOWN

REACTIONS (6)
  - Death [Fatal]
  - Acute respiratory failure [Unknown]
  - Upper gastrointestinal haemorrhage [Unknown]
  - Shock haemorrhagic [Unknown]
  - Acute respiratory distress syndrome [Unknown]
  - Contraindicated product administered [Unknown]
